FAERS Safety Report 4512849-5 (Version None)
Quarter: 2004Q4

REPORT INFORMATION
  Report Type: 
  Country: None (occurrence: None)
  Receive Date: 20041119
  Receipt Date: 20041119
  Transmission Date: 20050328
  Serious: Yes (Life-Threatening)
  Sender: FDA-Public Use
  Company Number: None

PATIENT
  Age: 48 Year
  Sex: Male
  Weight: 106 kg

DRUGS (1)
  1. NAPROSYN [Suspect]
     Indication: HEADACHE
     Dosage: 2 TABLETS   ONE TIME   ORAL
     Route: 048
     Dates: start: 20041113, end: 20041113

REACTIONS (3)
  - DRUG HYPERSENSITIVITY [None]
  - REACTION TO DRUG EXCIPIENT [None]
  - RESPIRATORY DISTRESS [None]
